FAERS Safety Report 9705618 (Version 1)
Quarter: 2013Q4

REPORT INFORMATION
  Report Type: Spontaneous
  Country: US (occurrence: US)
  Receive Date: 20131122
  Receipt Date: 20131122
  Transmission Date: 20140711
  Serious: No
  Sender: FDA-Public Use
  Company Number: US-GILEAD-2008-0017342

PATIENT
  Age: 19 Year
  Sex: Female
  Weight: 86.64 kg

DRUGS (5)
  1. LETAIRIS [Suspect]
     Indication: PULMONARY ARTERIAL HYPERTENSION
     Route: 048
     Dates: start: 20070924
  2. NEXIUM [Concomitant]
     Route: 048
  3. ASA LOW DOSE [Concomitant]
     Route: 048
  4. MULTI-VIT [Concomitant]
     Route: 048
  5. LASIX [Concomitant]
     Route: 048

REACTIONS (1)
  - Dyspepsia [None]
